FAERS Safety Report 12296389 (Version 2)
Quarter: 2016Q2

REPORT INFORMATION
  Report Type: Report from Study
  Country: US (occurrence: US)
  Receive Date: 20160422
  Receipt Date: 20160526
  Transmission Date: 20160815
  Serious: Yes (Other)
  Sender: FDA-Public Use
  Company Number: US-IPSEN BIOPHARMACEUTICALS, INC.-2016-03414

PATIENT
  Age: 91 Year
  Sex: Male

DRUGS (1)
  1. SOMATULINE DEPOT [Suspect]
     Active Substance: LANREOTIDE ACETATE
     Indication: SMALL INTESTINE CARCINOMA
     Dosage: 120 MG
     Route: 065
     Dates: end: 201601

REACTIONS (1)
  - Pancytopenia [Unknown]
